FAERS Safety Report 8557020-5 (Version None)
Quarter: 2012Q3

REPORT INFORMATION
  Report Type: 
  Country: None (occurrence: None)
  Receive Date: 20120801
  Receipt Date: 20120717
  Transmission Date: 20120928
  Serious: Yes (Hospitalization, Other)
  Sender: FDA-Public Use
  Company Number: US-ROCHE-1088118

PATIENT
  Sex: Female
  Weight: 68.1 kg

DRUGS (6)
  1. TRAMADOL HCL [Concomitant]
  2. ROCEPHIN [Suspect]
     Indication: ARTHRITIS INFECTIVE
     Dates: start: 20120101
  3. VANCOMYCIN [Interacting]
     Indication: ARTHRITIS INFECTIVE
  4. AMITRIPTLINE HYDROCHLORIDE TAB [Concomitant]
  5. PRISTIQ [Interacting]
     Indication: DEPRESSION
     Dates: start: 20120101
  6. PROPRANOLOL [Concomitant]
     Indication: RESTLESS LEGS SYNDROME

REACTIONS (16)
  - ARTHROPATHY [None]
  - ANGER [None]
  - PSYCHOTIC DISORDER [None]
  - DRUG INTERACTION [None]
  - STAPHYLOCOCCAL INFECTION [None]
  - SUICIDAL IDEATION [None]
  - HIP ARTHROPLASTY [None]
  - ANXIETY [None]
  - INFECTION [None]
  - DELUSION [None]
  - FALL [None]
  - IRRITABILITY [None]
  - PUPILLARY LIGHT REFLEX TESTS ABNORMAL [None]
  - MEMORY IMPAIRMENT [None]
  - AMNESIA [None]
  - PROTEUS INFECTION [None]
